FAERS Safety Report 4305450-X (Version None)
Quarter: 2004Q1

REPORT INFORMATION
  Report Type: 
  Country: None (occurrence: None)
  Receive Date: 20040226
  Receipt Date: 20040212
  Transmission Date: 20041129
  Serious: Yes (Death, Hospitalization)
  Sender: FDA-Public Use
  Company Number: PHHO2004JP02319

PATIENT
  Age: 64 Year
  Sex: Female
  Weight: 69 kg

DRUGS (14)
  1. NEORAL [Suspect]
     Indication: NEPHROTIC SYNDROME
     Dosage: 150 MG DAILY DOSE
     Route: 048
     Dates: start: 20020516, end: 20030903
  2. NEORAL [Suspect]
     Dosage: 175 MG DAILY DOSE
     Route: 048
     Dates: start: 20020904, end: 20021008
  3. NEORAL [Suspect]
     Dosage: 220 MG DAILY DOSE
     Route: 048
     Dates: start: 20021009, end: 20021022
  4. NEORAL [Suspect]
     Dosage: 225 MG DAILY DOSE
     Dates: start: 20021023, end: 20021224
  5. NEORAL [Suspect]
     Dosage: 150 MG DAILY DOSE
     Route: 048
     Dates: start: 20021225, end: 20030527
  6. PREDONINE [Suspect]
     Dosage: 40 MG DAILY DOSE
     Dates: start: 20020516, end: 20020529
  7. PREDONINE [Suspect]
     Dosage: 32.5 MG DAILY DOSE
     Dates: start: 20020530, end: 20020612
  8. PREDONINE [Suspect]
     Dosage: 25 MG DAILY DOSE
     Dates: start: 20020613, end: 20020820
  9. PREDONINE [Suspect]
     Dosage: 15 MG DAILY DOSE
     Dates: start: 20020821, end: 20021120
  10. PREDONINE [Suspect]
     Dosage: 12.5 MG DAILY DOSE
     Dates: start: 20021121, end: 20030414
  11. PREDONINE [Suspect]
     Dosage: 40 MG / DAY
     Route: 048
     Dates: start: 20030415, end: 20030101
  12. LIPITOR [Concomitant]
     Dosage: 10 MG
     Route: 048
     Dates: start: 20020520, end: 20030527
  13. NU LOTAN [Concomitant]
     Dosage: 50 MG
     Dates: start: 20020903, end: 20030527
  14. COMELIAN [Concomitant]
     Dosage: 200 MG
     Dates: start: 20020405, end: 20030527

REACTIONS (7)
  - ACUTE ABDOMEN [None]
  - ASCITES INFECTION [None]
  - CEREBRAL HAEMORRHAGE [None]
  - DIVERTICULAR PERFORATION [None]
  - ESCHERICHIA INFECTION [None]
  - SURGERY [None]
  - TREMOR [None]
